FAERS Safety Report 12301097 (Version 1)
Quarter: 2016Q2

REPORT INFORMATION
  Report Type: Spontaneous
  Country: US (occurrence: US)
  Receive Date: 20160425
  Receipt Date: 20160425
  Transmission Date: 20160815
  Serious: Yes (Other)
  Sender: FDA-Public Use
  Company Number: US-BAYER-2016-071951

PATIENT
  Sex: Female

DRUGS (1)
  1. MIRENA [Suspect]
     Active Substance: LEVONORGESTREL
     Indication: CONTRACEPTION
     Dosage: 20 MCG/24HR, CONT
     Route: 015
     Dates: start: 201510

REACTIONS (4)
  - Menstrual disorder [None]
  - Feeling abnormal [Not Recovered/Not Resolved]
  - Device dislocation [None]
  - Menstruation delayed [None]

NARRATIVE: CASE EVENT DATE: 20160407
